FAERS Safety Report 15878021 (Version 3)
Quarter: 2021Q2

REPORT INFORMATION
  Report Type: Report from Study
  Country: US (occurrence: US)
  Receive Date: 20190128
  Receipt Date: 20210513
  Transmission Date: 20210716
  Serious: Yes (Hospitalization)
  Sender: FDA-Public Use
  Company Number: US-ROCHE-2245566

PATIENT
  Age: 62 Year
  Sex: Female
  Weight: 45.6 kg

DRUGS (31)
  1. ATEZOLIZUMAB. [Suspect]
     Active Substance: ATEZOLIZUMAB
     Indication: OVARIAN CANCER
     Dosage: ON 24/DEC/2018, SHE RECEIVED THE MOST RECENT DOSE OF ATEZOLIZUMAB PRIOR TO THE AE AND SAE ONSET
     Route: 042
     Dates: start: 20180709
  2. CARBOPLATIN. [Suspect]
     Active Substance: CARBOPLATIN
     Indication: OVARIAN CANCER
     Dosage: AREA UNDER THE CURVE (AUC) OF 6 MG/ML/MIN?ON 23/OCT/2018, SHE RECEIVED THE MOST RECENT DOSE OF CARBO
     Route: 042
     Dates: start: 20180709
  3. BEVACIZUMAB. [Suspect]
     Active Substance: BEVACIZUMAB
     Indication: OVARIAN CANCER
     Dosage: ON 13/NOV/2018, SHE RECEIVED THE MOST RECENT DOSE OF BEVACIZUMAB (646.5 MG) PRIOR TO THE AE AND SAE
     Route: 042
     Dates: start: 20180731
  4. VERSED [Concomitant]
     Active Substance: MIDAZOLAM HYDROCHLORIDE
     Dates: start: 20180919
  5. NORMAL SALINE [Concomitant]
     Active Substance: SODIUM CHLORIDE
     Dates: start: 20180918
  6. PACLITAXEL. [Suspect]
     Active Substance: PACLITAXEL
     Indication: OVARIAN CANCER
     Dosage: ON 23/OCT/2018, SHE RECEIVED THE MOST RECENT DOSE OF PACLITAXEL (236.3 MG) PRIOR TO THE AE AND SAE O
     Route: 042
     Dates: start: 20180709
  7. VITAMIN D3 [Concomitant]
     Active Substance: CHOLECALCIFEROL
     Dates: start: 200903
  8. LIDOCAINE. [Concomitant]
     Active Substance: LIDOCAINE
     Dates: start: 20180709
  9. SENOKOT [Concomitant]
     Active Substance: SENNOSIDES
     Indication: CONSTIPATION
     Dates: start: 20180918
  10. REGLAN [Concomitant]
     Active Substance: METOCLOPRAMIDE HYDROCHLORIDE
     Indication: NAUSEA
     Dates: start: 20190107, end: 20190111
  11. CEFAZOLIN [Concomitant]
     Active Substance: CEFAZOLIN
     Indication: ABSCESS
     Dates: start: 20190107, end: 20190107
  12. FLAGYL [Concomitant]
     Active Substance: METRONIDAZOLE\METRONIDAZOLE HYDROCHLORIDE
     Indication: ABSCESS
     Dates: start: 20190107, end: 20190107
  13. LIDOCAINE. [Concomitant]
     Active Substance: LIDOCAINE
     Dates: start: 20180919
  14. COLACE [Concomitant]
     Active Substance: DOCUSATE SODIUM
     Dates: start: 20180918
  15. IBUPROFEN. [Concomitant]
     Active Substance: IBUPROFEN
     Indication: PAIN
     Dates: start: 20180828
  16. FENTANYL. [Concomitant]
     Active Substance: FENTANYL
     Dates: start: 20190108, end: 20190111
  17. ZOSYN [Concomitant]
     Active Substance: PIPERACILLIN SODIUM\TAZOBACTAM SODIUM
     Indication: ABSCESS
     Dates: start: 20180918
  18. SENNA [Concomitant]
     Active Substance: SENNA LEAF\SENNOSIDES\SENNOSIDES A AND B
     Indication: CONSTIPATION
     Dates: start: 20180703
  19. TYLENOL [Concomitant]
     Active Substance: ACETAMINOPHEN
     Indication: PAIN
     Dates: start: 20180602
  20. EMLA [Concomitant]
     Active Substance: LIDOCAINE\PRILOCAINE
     Dates: start: 20180709
  21. IBUPROFEN. [Concomitant]
     Active Substance: IBUPROFEN
     Indication: INFLAMMATION
  22. REGLAN [Concomitant]
     Active Substance: METOCLOPRAMIDE HYDROCHLORIDE
     Dates: start: 20180709
  23. COLACE [Concomitant]
     Active Substance: DOCUSATE SODIUM
     Indication: CONSTIPATION
     Dates: start: 20180703
  24. PEPCID [Concomitant]
     Active Substance: FAMOTIDINE
     Dates: start: 20180709
  25. PEPCID [Concomitant]
     Active Substance: FAMOTIDINE
     Dates: start: 20190108, end: 20190111
  26. ZYRTEC (UNITED STATES) [Concomitant]
     Dates: start: 20180709
  27. ZOFRAN [Concomitant]
     Active Substance: ONDANSETRON HYDROCHLORIDE
     Dates: start: 20180709
  28. TYLENOL [Concomitant]
     Active Substance: ACETAMINOPHEN
     Indication: PYREXIA
     Dates: start: 20190107, end: 20190112
  29. MIRALAX [Concomitant]
     Active Substance: POLYETHYLENE GLYCOL 3350
     Indication: CONSTIPATION
     Dates: start: 20180710
  30. FENTANYL. [Concomitant]
     Active Substance: FENTANYL
     Indication: PROCEDURAL PAIN
     Dates: start: 20180919
  31. DILAUDID [Concomitant]
     Active Substance: HYDROMORPHONE HYDROCHLORIDE
     Indication: PROCEDURAL PAIN
     Dates: start: 20190111, end: 20190112

REACTIONS (1)
  - Small intestinal obstruction [Recovered/Resolved]

NARRATIVE: CASE EVENT DATE: 20190104
